FAERS Safety Report 5238593-7 (Version None)
Quarter: 2007Q1

REPORT INFORMATION
  Report Type: 
  Country: None (occurrence: None)
  Receive Date: 20070214
  Receipt Date: 20070214
  Transmission Date: 20070707
  Serious: Yes (Hospitalization)
  Sender: FDA-Public Use
  Company Number: None

PATIENT
  Sex: Female
  Weight: 66.8 kg

DRUGS (3)
  1. LOSARTAN POTASSIUM [Suspect]
     Indication: DIABETES MELLITUS
     Dosage: 50 MG DAILY } 1 YEAR PTA
  2. LOSARTAN POTASSIUM [Suspect]
     Indication: HYPERTENSION
     Dosage: 50 MG DAILY } 1 YEAR PTA
  3. LOSARTAN POTASSIUM [Suspect]
     Indication: RENAL FAILURE
     Dosage: 50 MG DAILY } 1 YEAR PTA

REACTIONS (1)
  - RENAL FAILURE ACUTE [None]
